FAERS Safety Report 5024219-4 (Version None)
Quarter: 2006Q2

REPORT INFORMATION
  Report Type: 
  Country: None (occurrence: None)
  Receive Date: 20060613
  Receipt Date: 20060601
  Transmission Date: 20061013
  Serious: Yes (Hospitalization, Other)
  Sender: FDA-Public Use
  Company Number: PHBS2006JP08227

PATIENT
  Age: 23 Year
  Sex: Female

DRUGS (4)
  1. TEGRETOL [Suspect]
     Dosage: 500 MG/DAY
     Route: 048
  2. RIVOTRIL [Concomitant]
     Route: 048
  3. MYSTAN [Suspect]
     Route: 047
  4. DEPAKENE [Concomitant]
     Route: 048

REACTIONS (2)
  - PYELONEPHRITIS [None]
  - URINARY RETENTION [None]
